FAERS Safety Report 7258590-X (Version None)
Quarter: 2011Q1

REPORT INFORMATION
  Report Type: 
  Country: None (occurrence: None)
  Receive Date: 20110129
  Receipt Date: 20100625
  Transmission Date: 20110831
  Serious: Yes (Hospitalization, Other)
  Sender: FDA-Public Use
  Company Number: US-ABBOTT-05P-163-0292083-00

PATIENT
  Sex: Female
  Weight: 72.186 kg

DRUGS (16)
  1. METHOTREXATE [Concomitant]
     Indication: PRODUCT USED FOR UNKNOWN INDICATION
  2. HUMIRA [Suspect]
     Indication: RHEUMATOID ARTHRITIS
     Dosage: ON AND OFF
     Route: 058
     Dates: start: 20050101
  3. HUMIRA [Suspect]
     Route: 058
     Dates: start: 20060112, end: 20060126
  4. TOPAMAX [Concomitant]
     Indication: HEADACHE
  5. DILANTIN [Concomitant]
     Indication: PRODUCT USED FOR UNKNOWN INDICATION
  6. CELEBREX [Concomitant]
     Indication: PRODUCT USED FOR UNKNOWN INDICATION
  7. ENBREL [Concomitant]
     Indication: RHEUMATOID ARTHRITIS
     Route: 050
     Dates: start: 20060202
  8. PLAVIX [Concomitant]
     Indication: PRODUCT USED FOR UNKNOWN INDICATION
     Route: 048
     Dates: start: 20030101
  9. TOPAMAX [Concomitant]
     Indication: CONVULSION
     Route: 048
     Dates: start: 20050101
  10. OSCAL [Concomitant]
     Indication: PRODUCT USED FOR UNKNOWN INDICATION
  11. PREDNISONE [Concomitant]
     Indication: RHEUMATOID ARTHRITIS
     Route: 048
  12. FOLIC ACID [Concomitant]
     Indication: PRODUCT USED FOR UNKNOWN INDICATION
  13. DEPAKOTE [Concomitant]
     Indication: CONVULSION
     Dosage: 500MG/2 TAB
     Dates: start: 20050101
  14. PHENOBARBITAL [Concomitant]
     Indication: EPILEPSY
  15. ACTONEL [Concomitant]
     Indication: PRODUCT USED FOR UNKNOWN INDICATION
  16. PHENOBARBITAL [Concomitant]
     Indication: CONVULSION
     Route: 048

REACTIONS (1)
  - BREAST CANCER [None]
